FAERS Safety Report 8974571 (Version 1)
Quarter: 2012Q4

REPORT INFORMATION
  Report Type: 
  Country: US (occurrence: US)
  Receive Date: 20121219
  Receipt Date: 20121219
  Transmission Date: 20130627
  Serious: No
  Sender: FDA-Public Use
  Company Number: US-AMGEN-USASP2012057496

PATIENT
  Age: 84 Year
  Sex: Female

DRUGS (8)
  1. PROLIA [Suspect]
     Indication: OSTEOPOROSIS POSTMENOPAUSAL
     Dosage: 60 mg, q6mo
     Dates: start: 20120907
  2. PLAVIX [Concomitant]
     Dosage: UNK
  3. CALCIUM WITH VITAMIN D             /00944201/ [Concomitant]
     Dosage: 3 DF, qd
     Dates: start: 201207
  4. BABY ASPIRIN [Concomitant]
     Dosage: UNK
  5. CRESTOR [Concomitant]
     Dosage: UNK
  6. BENICAR [Concomitant]
     Dosage: UNK
  7. METOPROLOL [Concomitant]
     Dosage: UNK
  8. AMLODIPINE [Concomitant]
     Dosage: UNK

REACTIONS (2)
  - Diarrhoea [Not Recovered/Not Resolved]
  - Pain in extremity [Recovered/Resolved]
